APPROVED DRUG PRODUCT: BENAZEPRIL HYDROCHLORIDE AND HYDROCHLOROTHIAZIDE
Active Ingredient: BENAZEPRIL HYDROCHLORIDE; HYDROCHLOROTHIAZIDE
Strength: 20MG;12.5MG
Dosage Form/Route: TABLET;ORAL
Application: A076348 | Product #003
Applicant: ANI PHARMACEUTICALS INC
Approved: Feb 11, 2004 | RLD: No | RS: No | Type: DISCN